FAERS Safety Report 5357061-5 (Version None)
Quarter: 2007Q2

REPORT INFORMATION
  Report Type: 
  Country: None (occurrence: None)
  Receive Date: 20070614
  Receipt Date: 20070606
  Transmission Date: 20071010
  Serious: Yes (Hospitalization)
  Sender: FDA-Public Use
  Company Number: JP-ASTRAZENECA-2007AP03408

PATIENT
  Age: 72 Year
  Sex: Male

DRUGS (11)
  1. CRESTOR [Suspect]
     Indication: HYPERCHOLESTEROLAEMIA
     Route: 048
     Dates: start: 20070112, end: 20070508
  2. MICARDIS [Concomitant]
     Route: 048
     Dates: start: 20021129
  3. DILTIAZEM HCL [Concomitant]
     Route: 048
     Dates: start: 20021129
  4. GASTER [Concomitant]
     Route: 048
     Dates: start: 20021129
  5. DEPAS [Concomitant]
     Route: 048
     Dates: start: 20021129
  6. MAGNESIUM OXIDE [Concomitant]
     Route: 048
     Dates: start: 20021129
  7. SM [Concomitant]
     Route: 048
     Dates: start: 20021129
  8. AZULENE GLUTAMINE FINE GRANULE [Concomitant]
     Route: 048
     Dates: start: 20021129
  9. HARNAL [Concomitant]
     Route: 048
  10. LOXONIN [Concomitant]
     Route: 048
  11. LIPOVAS [Concomitant]
     Dates: end: 20070111

REACTIONS (2)
  - C-REACTIVE PROTEIN INCREASED [None]
  - DRUG ERUPTION [None]
